FAERS Safety Report 8257442-6 (Version None)
Quarter: 2012Q2

REPORT INFORMATION
  Report Type: 
  Country: None (occurrence: None)
  Receive Date: 20120403
  Receipt Date: 20120330
  Transmission Date: 20120825
  Serious: Yes (Other)
  Sender: FDA-Public Use
  Company Number: NZ-ROCHE-1049430

PATIENT
  Sex: Male
  Weight: 87.3 kg

DRUGS (2)
  1. RITUXIMAB [Suspect]
     Indication: PRODUCT USED FOR UNKNOWN INDICATION
     Route: 042
     Dates: start: 20101112
  2. INTRAGAM [Concomitant]

REACTIONS (2)
  - HYPOGAMMAGLOBULINAEMIA [None]
  - INFECTION [None]
